FAERS Safety Report 12035543 (Version 1)
Quarter: 2016Q1

REPORT INFORMATION
  Report Type: Report from Study
  Country: US (occurrence: US)
  Receive Date: 20160207
  Receipt Date: 20160207
  Transmission Date: 20160526
  Serious: No
  Sender: FDA-Public Use
  Company Number: US-ABBVIE-15K-163-1523143-00

PATIENT
  Age: 43 Year
  Sex: Female

DRUGS (2)
  1. HUMIRA [Suspect]
     Active Substance: ADALIMUMAB
     Indication: CROHN^S DISEASE
     Route: 058
     Dates: start: 20151210, end: 20151210
  2. HUMIRA [Suspect]
     Active Substance: ADALIMUMAB
     Route: 058
     Dates: start: 20151211, end: 20151211

REACTIONS (12)
  - Sinusitis [Recovering/Resolving]
  - Gastrointestinal infection [Recovering/Resolving]
  - Device issue [Unknown]
  - Diarrhoea [Recovering/Resolving]
  - Wrong technique in product usage process [Unknown]
  - Incorrect dose administered [Unknown]
  - Injection site pain [Recovering/Resolving]
  - Device issue [Unknown]
  - Injection site bruising [Recovering/Resolving]
  - Upper respiratory tract infection [Recovering/Resolving]
  - Abdominal pain upper [Recovering/Resolving]
  - Incorrect dose administered [Unknown]

NARRATIVE: CASE EVENT DATE: 20151210
